FAERS Safety Report 7229322-6 (Version None)
Quarter: 2011Q1

REPORT INFORMATION
  Report Type: 
  Country: None (occurrence: None)
  Receive Date: 20110117
  Receipt Date: 20110111
  Transmission Date: 20110831
  Serious: Yes (Other)
  Sender: FDA-Public Use
  Company Number: FR-JNJFOC-20110102784

PATIENT
  Age: 46 Year
  Sex: Male

DRUGS (6)
  1. REMICADE [Suspect]
     Dosage: 21ST INFUSION
     Route: 042
  2. REMICADE [Suspect]
     Route: 042
  3. REMICADE [Suspect]
     Indication: RHEUMATOID ARTHRITIS
     Route: 042
  4. METHOTREXATE [Concomitant]
  5. REMICADE [Suspect]
     Route: 042
  6. REMICADE [Suspect]
     Route: 042

REACTIONS (5)
  - HYPERSENSITIVITY [None]
  - INFUSION RELATED REACTION [None]
  - RHEUMATOID ARTHRITIS [None]
  - CHEST DISCOMFORT [None]
  - PARAESTHESIA [None]
